FAERS Safety Report 7245910-5 (Version None)
Quarter: 2011Q1

REPORT INFORMATION
  Report Type: 
  Country: None (occurrence: None)
  Receive Date: 20110126
  Receipt Date: 20060503
  Transmission Date: 20110831
  Serious: Yes (Other)
  Sender: FDA-Public Use
  Company Number: PHHY2006CL02750

PATIENT
  Age: 49 Year
  Sex: Male

DRUGS (1)
  1. TAREG [Suspect]
     Dosage: UNK

REACTIONS (1)
  - PNEUMONITIS [None]
